FAERS Safety Report 7312511-X (Version None)
Quarter: 2011Q1

REPORT INFORMATION
  Report Type: 
  Country: None (occurrence: None)
  Receive Date: 20110224
  Receipt Date: 20101201
  Transmission Date: 20110831
  Serious: Yes (Other)
  Sender: FDA-Public Use
  Company Number: US-BAYER-2010-006324

PATIENT
  Sex: Male

DRUGS (1)
  1. CIPRO [Suspect]
     Indication: SURGERY
     Dosage: 500 MG, BID
     Route: 048
     Dates: start: 20100501

REACTIONS (6)
  - TENDON PAIN [None]
  - MUSCULAR WEAKNESS [None]
  - TENDONITIS [None]
  - MUSCULOSKELETAL STIFFNESS [None]
  - TREMOR [None]
  - DYSSTASIA [None]
